FAERS Safety Report 8436458-0 (Version None)
Quarter: 2012Q2

REPORT INFORMATION
  Report Type: 
  Country: None (occurrence: None)
  Receive Date: 20120614
  Receipt Date: 20110418
  Transmission Date: 20120825
  Serious: No
  Sender: FDA-Public Use
  Company Number: US-NOVEN-11US002291

PATIENT
  Sex: Male

DRUGS (1)
  1. DAYTRANA [Suspect]
     Indication: ATTENTION DEFICIT/HYPERACTIVITY DISORDER
     Dosage: UNK, 1X/DAY EVERY 9 HRS:QD
     Route: 062
     Dates: start: 20110101

REACTIONS (3)
  - ACNE [None]
  - PRURITUS GENERALISED [None]
  - DERMATITIS ALLERGIC [None]
